FAERS Safety Report 14956769 (Version 1)
Quarter: 2018Q2

REPORT INFORMATION
  Report Type: Spontaneous
  Country: US (occurrence: US)
  Receive Date: 20180531
  Receipt Date: 20180531
  Transmission Date: 20180711
  Serious: No
  Sender: FDA-Public Use
  Company Number: US-NOVEN PHARMACEUTICALS, INC.-US2017001272

PATIENT

DRUGS (4)
  1. DAYTRANA [Suspect]
     Active Substance: METHYLPHENIDATE
     Dosage: 10 MG, UNKNOWN
     Route: 062
     Dates: start: 201710, end: 201710
  2. NEXPLANON [Concomitant]
     Active Substance: ETONOGESTREL
     Indication: PREMENSTRUAL DYSPHORIC DISORDER
     Dosage: UNK UNK, UNKNOWN
  3. DAYTRANA [Suspect]
     Active Substance: METHYLPHENIDATE
     Indication: ATTENTION DEFICIT/HYPERACTIVITY DISORDER
     Dosage: 10 MG, UNK
     Route: 062
  4. TRAZODONE HYDROCHLORIDE. [Concomitant]
     Active Substance: TRAZODONE HYDROCHLORIDE
     Indication: INSOMNIA
     Dosage: UNK, UNKNOWN

REACTIONS (6)
  - Off label use [Unknown]
  - Drug dose omission [Not Recovered/Not Resolved]
  - Therapy cessation [Recovered/Resolved]
  - Product adhesion issue [Recovered/Resolved]
  - Product quality issue [Recovered/Resolved]
  - No adverse event [Unknown]

NARRATIVE: CASE EVENT DATE: 201710
